FAERS Safety Report 4341448-3 (Version None)
Quarter: 2004Q2

REPORT INFORMATION
  Report Type: 
  Country: None (occurrence: None)
  Receive Date: 20040414
  Receipt Date: 20040408
  Transmission Date: 20050107
  Serious: Yes (Other)
  Sender: FDA-Public Use
  Company Number: 2004-03-1801

PATIENT
  Age: 75 Year
  Sex: Female
  Weight: 53 kg

DRUGS (7)
  1. REBETOL [Suspect]
     Indication: HEPATITIS C
     Dosage: 600 MG QD ORAL
     Route: 048
     Dates: start: 20040224
  2. INTRON A [Suspect]
     Indication: HEPATITIS C
     Dosage: SEE IMAGE
     Route: 030
     Dates: start: 20040224, end: 20040308
  3. INTRON A [Suspect]
     Indication: HEPATITIS C
     Dosage: SEE IMAGE
     Route: 030
     Dates: start: 20040309
  4. STRONG NEO-MINOPHAGEN C [Concomitant]
  5. HERBAL MEDICATION [Concomitant]
  6. PROHEPARUM [Concomitant]
  7. URSODEOXYCHOLIC ACID [Concomitant]

REACTIONS (8)
  - ALPHA 1 FOETOPROTEIN INCREASED [None]
  - ANOREXIA [None]
  - DEPRESSION [None]
  - HEPATIC FIBROSIS [None]
  - MALAISE [None]
  - PLATELET COUNT DECREASED [None]
  - PROTEIN INDUCED BY VITAMIN K ABSENCE OR ANTAGONIST II INCREASED [None]
  - PYREXIA [None]
